FAERS Safety Report 4864013-8 (Version None)
Quarter: 2005Q4

REPORT INFORMATION
  Report Type: 
  Country: None (occurrence: None)
  Receive Date: 20051219
  Receipt Date: 20051205
  Transmission Date: 20060501
  Serious: Yes (Death)
  Sender: FDA-Public Use
  Company Number: 2005163475

PATIENT
  Age: 44 Year
  Sex: Male

DRUGS (1)
  1. VFEND [Suspect]
     Indication: ILL-DEFINED DISORDER
     Dosage: INTRAVENOUS
     Route: 042

REACTIONS (4)
  - AORTITIS [None]
  - BLOOD DISORDER [None]
  - SCEDOSPORIUM INFECTION [None]
  - TOOTH ABSCESS [None]
